FAERS Safety Report 6029996-1 (Version None)
Quarter: 2009Q1

REPORT INFORMATION
  Report Type: 
  Country: None (occurrence: None)
  Receive Date: 20090107
  Receipt Date: 20090105
  Transmission Date: 20090719
  Serious: Yes (Hospitalization)
  Sender: FDA-Public Use
  Company Number: D0059580A

PATIENT
  Sex: Female

DRUGS (4)
  1. VIANI FORTE [Suspect]
     Dosage: 1PUFF TWICE PER DAY
     Route: 055
     Dates: start: 20050801
  2. VIANI [Suspect]
     Dosage: 1PUFF TWICE PER DAY
     Route: 055
     Dates: start: 20050201
  3. FLUTIDE [Suspect]
     Dosage: 1PUFF TWICE PER DAY
     Route: 055
     Dates: start: 20030501
  4. PULMICORT-100 [Suspect]
     Dosage: 5MG TWICE PER DAY
     Route: 055
     Dates: start: 20021101, end: 20030501

REACTIONS (4)
  - BLOOD PRESSURE INCREASED [None]
  - INFECTION SUSCEPTIBILITY INCREASED [None]
  - PNEUMONIA [None]
  - SINUSITIS [None]
